FAERS Safety Report 9895975 (Version 2)
Quarter: 2014Q1

REPORT INFORMATION
  Report Type: Spontaneous
  Country: US (occurrence: US)
  Receive Date: 20140213
  Receipt Date: 20140213
  Transmission Date: 20141002
  Serious: No
  Sender: FDA-Public Use
  Company Number: US-BRISTOL-MYERS SQUIBB COMPANY-17409095

PATIENT
  Age: 50 Year
  Sex: Female
  Weight: 61.68 kg

DRUGS (11)
  1. ABATACEPT SUBQ INJECTION 125MG/ML [Suspect]
     Indication: RHEUMATOID ARTHRITIS
     Dosage: 125MG/ML
     Route: 058
     Dates: end: 201306
  2. HYDROCHLOROTHIAZIDE [Concomitant]
     Dosage: HYDROCHLOROTHIAZIDE TABS
  3. PREDNISONE [Concomitant]
     Dosage: PREDNISONE 1 MG TABS
  4. METHOTREXATE [Concomitant]
     Dosage: TABS
  5. CALCIUM + VITAMIN D [Concomitant]
  6. FOLIC ACID [Concomitant]
     Dosage: TABS
  7. VITAMIN C [Concomitant]
     Dosage: CAPS
  8. OMEGA [Concomitant]
     Dosage: OMEGA -3-6-9 CAPS
  9. VITAMIN D [Concomitant]
     Dosage: VITAMIN D -1000UNIT
  10. VITAMIN B12 [Concomitant]
     Dosage: VITAMIN B12 -1000 CT TABS
  11. IBU [Concomitant]
     Dosage: TABS

REACTIONS (5)
  - Alopecia [Unknown]
  - Rash [Unknown]
  - Swelling [Unknown]
  - Fluid retention [Unknown]
  - Dizziness [Unknown]
